FAERS Safety Report 17714621 (Version 1)
Quarter: 2020Q2

REPORT INFORMATION
  Report Type: Spontaneous
  Country: FR (occurrence: FR)
  Receive Date: 20200427
  Receipt Date: 20200427
  Transmission Date: 20200714
  Serious: Yes (Life-Threatening)
  Sender: FDA-Public Use
  Company Number: FR-FRESENIUS KABI-FK202004109

PATIENT
  Age: 72 Year
  Sex: Male

DRUGS (4)
  1. OLANZAPINE. [Suspect]
     Active Substance: OLANZAPINE
     Indication: BIPOLAR II DISORDER
     Route: 065
  2. LAMOTRIGINE. [Suspect]
     Active Substance: LAMOTRIGINE
     Indication: BIPOLAR II DISORDER
     Route: 065
  3. HALOPERIDOL INJECTION (MANUFACTURER UNKNOWN) [Suspect]
     Active Substance: HALOPERIDOL LACTATE
     Indication: BIPOLAR II DISORDER
     Route: 065
  4. PHENELZINE [Suspect]
     Active Substance: PHENELZINE
     Indication: BIPOLAR II DISORDER
     Route: 065

REACTIONS (3)
  - Dementia with Lewy bodies [Unknown]
  - Unmasking of previously unidentified disease [Unknown]
  - Malignant catatonia [Recovered/Resolved]
